FAERS Safety Report 16325478 (Version 1)
Quarter: 2019Q2

REPORT INFORMATION
  Report Type: Spontaneous
  Country: GB (occurrence: GB)
  Receive Date: 20190517
  Receipt Date: 20190517
  Transmission Date: 20190711
  Serious: Yes (Disabling, Other)
  Sender: FDA-Public Use
  Company Number: GB-TEVA-2019-GB-1050415

PATIENT
  Age: 58 Year
  Sex: Female
  Weight: 54 kg

DRUGS (13)
  1. CETIRIZINE [Concomitant]
     Active Substance: CETIRIZINE HYDROCHLORIDE
     Dates: start: 20190407
  2. LANSOPRAZOLE. [Concomitant]
     Active Substance: LANSOPRAZOLE
     Dates: start: 20180530
  3. BUDESONIDE. [Concomitant]
     Active Substance: BUDESONIDE
     Dosage: USE AS DIRECTED.
     Dates: start: 20180530
  4. LOSARTAN. [Concomitant]
     Active Substance: LOSARTAN
     Dates: start: 20180530
  5. BISACODYL. [Concomitant]
     Active Substance: BISACODYL
     Dosage: TAKE ONE OR TWO AT NIGHT.
     Dates: start: 20180530
  6. PIROXICAM. [Concomitant]
     Active Substance: PIROXICAM
     Dosage: (APPLY TO THE AFFECTED AREA 3 TO 4 TIMES A DAY)
     Route: 061
     Dates: start: 20180530
  7. NITROFURANTOIN. [Suspect]
     Active Substance: NITROFURANTOIN
     Dates: start: 20190326, end: 20190402
  8. ADCAL (CALCIUM CARBONATE) [Concomitant]
     Active Substance: CALCIUM CARBONATE
     Indication: BONE DISORDER
     Dates: start: 20180530
  9. PREDNISOLONE. [Concomitant]
     Active Substance: PREDNISOLONE
     Dates: start: 20190410
  10. OPTIVE [Concomitant]
     Active Substance: CARBOXYMETHYLCELLULOSE SODIUM\GLYCERIN
     Dosage: USE AS DIRECTED.
     Dates: start: 20180530
  11. HYOSCINE BUTYLBROMIDE [Concomitant]
     Active Substance: BUTYLSCOPOLAMINE BROMIDE
     Dosage: TAKE UP TO TWO 4 TIMES PER DAY.
     Dates: start: 20180530
  12. ALENDRONIC ACID [Concomitant]
     Active Substance: ALENDRONIC ACID
     Indication: PROPHYLAXIS
     Dosage: TO PROTECT BONES
     Dates: start: 20180530
  13. LEVOTHYROXINE. [Concomitant]
     Active Substance: LEVOTHYROXINE
     Indication: THYROID DISORDER
     Dates: start: 20180530

REACTIONS (3)
  - Swelling face [Recovered/Resolved]
  - Urticaria [Recovered/Resolved]
  - Dermatitis bullous [Unknown]
